FAERS Safety Report 9187973 (Version 1)
Quarter: 2013Q1

REPORT INFORMATION
  Report Type: Spontaneous
  Country: US (occurrence: US)
  Receive Date: 20130325
  Receipt Date: 20130325
  Transmission Date: 20140127
  Serious: No
  Sender: FDA-Public Use
  Company Number: US-MYLANLABS-2012S1021931

PATIENT
  Age: 55 Year
  Sex: Male

DRUGS (4)
  1. FENTANYL TRANSDERMAL SYSTEM [Suspect]
     Indication: PAIN
     Dosage: Q3D
     Route: 062
     Dates: start: 20121013
  2. METOPROLOL [Concomitant]
     Indication: BLOOD PRESSURE INCREASED
     Route: 048
  3. LOTREL [Concomitant]
     Indication: BLOOD PRESSURE INCREASED
     Route: 048
  4. NORCO [Concomitant]
     Indication: BREAKTHROUGH PAIN
     Route: 048

REACTIONS (2)
  - Application site rash [Not Recovered/Not Resolved]
  - Application site burn [Not Recovered/Not Resolved]
